FAERS Safety Report 4902372-8 (Version None)
Quarter: 2006Q1

REPORT INFORMATION
  Report Type: 
  Country: None (occurrence: None)
  Receive Date: 20060202
  Receipt Date: 20060124
  Transmission Date: 20060701
  Serious: Yes (Death)
  Sender: FDA-Public Use
  Company Number: 2005-12-0806

PATIENT
  Age: 74 Year
  Sex: Female
  Weight: 62 kg

DRUGS (6)
  1. TEMODAL [Suspect]
     Indication: GLIOBLASTOMA
     Dosage: 160 MG QD ORAL
     Route: 048
     Dates: start: 20051121, end: 20051127
  2. FORTECORTIN TABLETS [Concomitant]
  3. BELOC-ZOK TABLETS [Concomitant]
  4. NORVASC [Concomitant]
  5. HUMALOG (INSULIN ANALOG) [Concomitant]
  6. ACTRAPID HUMAN INJECTABLE [Concomitant]

REACTIONS (1)
  - RESPIRATORY PARALYSIS [None]
